FAERS Safety Report 21423822 (Version 1)
Quarter: 2022Q4

REPORT INFORMATION
  Report Type: Spontaneous
  Country: US (occurrence: None)
  Receive Date: 20221006
  Receipt Date: 20221006
  Transmission Date: 20230113
  Serious: No
  Sender: FDA-Public Use
  Company Number: None

PATIENT
  Age: 41 Year
  Sex: Female

DRUGS (1)
  1. BENLYSTA [Suspect]
     Active Substance: BELIMUMAB
     Dosage: 200MG OTHER   SUBCUTANEOUS?
     Route: 058
     Dates: start: 202112

REACTIONS (7)
  - Blood pressure increased [None]
  - Lupus nephritis [None]
  - Metastases to kidney [None]
  - Systemic lupus erythematosus [None]
  - Pulmonary embolism [None]
  - Haemorrhage [None]
  - Biopsy lung [None]

NARRATIVE: CASE EVENT DATE: 20220916
